FAERS Safety Report 9106589 (Version 1)
Quarter: 2013Q1

REPORT INFORMATION
  Report Type: Spontaneous
  Country: US (occurrence: US)
  Receive Date: 20130221
  Receipt Date: 20130221
  Transmission Date: 20140127
  Serious: Yes (Other)
  Sender: FDA-Public Use
  Company Number: PHEH2013US004272

PATIENT
  Sex: Female

DRUGS (7)
  1. RECLAST [Suspect]
     Dosage: UNK UKN, YEARLY
     Dates: start: 20130107
  2. PREDNISONE [Concomitant]
     Dosage: UNK UKN, UNK
  3. HUMIRA [Concomitant]
     Dosage: UNK UKN, UNK
  4. FOLIC ACID [Concomitant]
     Dosage: UNK UKN, UNK
  5. MELOXICAM [Concomitant]
     Dosage: UNK UKN, UNK
  6. SYNTHROID [Concomitant]
     Dosage: UNK UKN, UNK
  7. RESTASIS [Concomitant]
     Dosage: UNK UKN, UNK

REACTIONS (2)
  - Rheumatoid arthritis [Unknown]
  - Pain [Unknown]
